FAERS Safety Report 8265445 (Version 1)
Quarter: 2020Q3

REPORT INFORMATION
  Report Type: Report from Study
  Country: BG (occurrence: BG)
  Receive Date: 20111128
  Receipt Date: 20111128
  Transmission Date: 20201105
  Serious: Yes (Hospitalization)
  Sender: FDA-Public Use
  Company Number: BG-JNJFOC-20110607167

PATIENT
  Age: 62 Year
  Sex: Male
  Weight: 76 kg

DRUGS (8)
  1. SALAZOPYRIN [Concomitant]
     Active Substance: SULFASALAZINE
     Indication: COLITIS ULCERATIVE
     Route: 048
     Dates: start: 200811
  2. ACETYSAL [Concomitant]
     Indication: ILL-DEFINED DISORDER
     Route: 048
     Dates: start: 20050606
  3. GOLIMUMAB [Suspect]
     Active Substance: GOLIMUMAB
     Indication: COLITIS ULCERATIVE
     Route: 058
     Dates: start: 20091106
  4. ENALAPRIL [Concomitant]
     Active Substance: ENALAPRIL
     Indication: ILL-DEFINED DISORDER
     Route: 048
     Dates: start: 20050606
  5. METAMIZOLE SODIUM [Concomitant]
     Active Substance: METAMIZOLE SODIUM
     Indication: ILL-DEFINED DISORDER
     Route: 048
     Dates: start: 20110103, end: 20110106
  6. GOLIMUMAB [Suspect]
     Active Substance: GOLIMUMAB
     Route: 058
     Dates: start: 20101216
  7. GOLIMUMAB [Suspect]
     Active Substance: GOLIMUMAB
     Route: 058
     Dates: start: 20110601
  8. DOXYCYCLINE. [Concomitant]
     Active Substance: DOXYCYCLINE
     Indication: ILL-DEFINED DISORDER
     Route: 048
     Dates: start: 20110103, end: 20110106

REACTIONS (1)
  - Pneumonia [Recovered/Resolved]

NARRATIVE: CASE EVENT DATE: 20110106
